FAERS Safety Report 9097134 (Version 3)
Quarter: 2013Q3

REPORT INFORMATION
  Report Type: Report from Study
  Country: ES (occurrence: ES)
  Receive Date: 20130212
  Receipt Date: 20130718
  Transmission Date: 20140515
  Serious: Yes (Hospitalization)
  Sender: FDA-Public Use
  Company Number: ES-ROCHE-1150336

PATIENT
  Age: 63 Year
  Sex: Male
  Weight: 62.1 kg

DRUGS (9)
  1. CALCIUM FOLINATE [Suspect]
     Indication: COLORECTAL CANCER METASTATIC
     Dosage: LAST DOSE TAKEN: 696MG
     Route: 042
     Dates: start: 20120814
  2. FLUOROURACIL [Suspect]
     Indication: COLORECTAL CANCER METASTATIC
     Dosage: LAST DOSE OF 5FU BOLUS TAKEN: 696MG
     Route: 040
     Dates: start: 20120814
  3. FLUOROURACIL [Suspect]
     Dosage: LAST DOSE OF 5FU INFUSION TAKEN: 4176MG
     Route: 041
     Dates: start: 20120814
  4. ENALAPRIL [Concomitant]
     Indication: HYPERTENSION
     Route: 048
     Dates: start: 20120827
  5. RANITIDINE [Concomitant]
     Indication: DYSPEPSIA
     Route: 048
     Dates: start: 20120903, end: 20121105
  6. EMULIQUEN [Concomitant]
     Indication: CONSTIPATION
     Route: 048
     Dates: start: 20120903, end: 20121105
  7. MEGF0444A [Suspect]
     Indication: COLORECTAL CANCER METASTATIC
     Dosage: MOST RECENT DOSE: 11 SEP 2012
     Route: 042
     Dates: start: 20120814
  8. BEVACIZUMAB [Suspect]
     Indication: COLORECTAL CANCER METASTATIC
     Dosage: LAST DOSE TAKEN: 305MG
     Route: 042
     Dates: start: 20120814
  9. OXALIPLATIN [Suspect]
     Indication: COLORECTAL CANCER METASTATIC
     Dosage: LAST DOSE TAKEN: 148MG
     Route: 042
     Dates: start: 20120814

REACTIONS (1)
  - Intestinal obstruction [Recovered/Resolved]
